FAERS Safety Report 6261971-4 (Version None)
Quarter: 2009Q3

REPORT INFORMATION
  Report Type: 
  Country: None (occurrence: None)
  Receive Date: 20090709
  Receipt Date: 20090706
  Transmission Date: 20100115
  Serious: Yes (Other)
  Sender: FDA-Public Use
  Company Number: D0062108A

PATIENT
  Sex: Female
  Weight: 13 kg

DRUGS (1)
  1. ELMENDOS [Suspect]
     Dosage: 100MG SINGLE DOSE
     Route: 048
     Dates: start: 20090628, end: 20090628

REACTIONS (4)
  - ACCIDENTAL DRUG INTAKE BY CHILD [None]
  - ACCIDENTAL EXPOSURE [None]
  - AGGRESSION [None]
  - AGITATION [None]
